FAERS Safety Report 5200889-2 (Version None)
Quarter: 2007Q1

REPORT INFORMATION
  Report Type: 
  Country: None (occurrence: None)
  Receive Date: 20070108
  Receipt Date: 20061226
  Transmission Date: 20070707
  Serious: Yes (Hospitalization)
  Sender: FDA-Public Use
  Company Number: HQWYE076402JAN07

PATIENT
  Sex: Female

DRUGS (6)
  1. ENBREL [Suspect]
     Indication: RHEUMATOID ARTHRITIS
     Route: 058
     Dates: start: 20050428, end: 20061031
  2. METHANIAZIDE [Suspect]
     Dosage: UNSPECIFIED
     Route: 048
     Dates: start: 20050301
  3. ROCALTROL [Concomitant]
     Dosage: UNSPECIFIED
     Route: 048
     Dates: end: 20061031
  4. OMEPRAZON [Concomitant]
     Dosage: UNSPECIFIED
     Route: 048
  5. PREDONINE [Concomitant]
     Indication: RHEUMATOID ARTHRITIS
     Dosage: UNSPECIFIED
     Route: 048
     Dates: end: 20061031
  6. MOBIC [Concomitant]
     Indication: RHEUMATOID ARTHRITIS
     Dosage: UNSPECIFIED
     Route: 048
     Dates: end: 20061031

REACTIONS (3)
  - BLOOD ALKALINE PHOSPHATASE INCREASED [None]
  - LIVER DISORDER [None]
  - PYREXIA [None]
